FAERS Safety Report 9340348 (Version 1)
Quarter: 2013Q2

REPORT INFORMATION
  Report Type: Spontaneous
  Country: NL (occurrence: NL)
  Receive Date: 20130610
  Receipt Date: 20130610
  Transmission Date: 20140414
  Serious: Yes (Hospitalization)
  Sender: FDA-Public Use
  Company Number: NL-TEVA-409449ISR

PATIENT
  Age: 69 Year
  Sex: Female
  Weight: 70 kg

DRUGS (3)
  1. HYDROCHLOORTHIAZIDE TABLET 12,5MG [Suspect]
     Indication: HYPERTENSION
     Dosage: 1 TIME PER DAY 1 PIECE (S)
     Route: 048
     Dates: start: 20130221, end: 20130430
  2. NEXIUM TABLET MSR 20MG [Concomitant]
     Dosage: 1 TIME PER DAY 1 PIECE (S)
     Route: 048
     Dates: start: 20101028
  3. CALCIUMCARBONAAT BRUISTABLET 1,25G (500MG CA) [Concomitant]
     Dosage: 2 TIMES PER DAY 1 PIECE (S)
     Route: 048
     Dates: start: 20101028

REACTIONS (3)
  - Pneumonia [Recovered/Resolved]
  - Pulmonary oedema [Recovered/Resolved]
  - Dyspnoea [Recovered/Resolved]
